FAERS Safety Report 7260516-X (Version None)
Quarter: 2011Q1

REPORT INFORMATION
  Report Type: 
  Country: None (occurrence: None)
  Receive Date: 20110130
  Receipt Date: 20101220
  Transmission Date: 20110831
  Serious: No
  Sender: FDA-Public Use
  Company Number: US-ABBOTT-10P-163-0692713-00

PATIENT
  Age: 69 Year
  Sex: Female

DRUGS (8)
  1. BETACAROTENE [Concomitant]
     Indication: EYE DISORDER
  2. LOVAZA [Concomitant]
     Indication: PRODUCT USED FOR UNKNOWN INDICATION
  3. PREDNISONE [Concomitant]
     Indication: PRODUCT USED FOR UNKNOWN INDICATION
  4. HUMIRA [Suspect]
     Indication: RHEUMATOID ARTHRITIS
     Dates: start: 20101122
  5. HYDROXYCHLOROQUINE [Concomitant]
     Indication: RHEUMATOID ARTHRITIS
  6. UNKNOWN MEDICATION [Concomitant]
     Indication: DEPRESSION
  7. ACTOS [Concomitant]
     Indication: DIABETES MELLITUS
  8. LISINOPRIL [Concomitant]
     Indication: HYPERTENSION

REACTIONS (6)
  - CONTUSION [None]
  - HAEMORRHAGE [None]
  - RASH MACULAR [None]
  - COUGH [None]
  - INJECTION SITE PAIN [None]
  - SINUS CONGESTION [None]
